FAERS Safety Report 8548092-2 (Version None)
Quarter: 2012Q3

REPORT INFORMATION
  Report Type: 
  Country: None (occurrence: None)
  Receive Date: 20120730
  Receipt Date: 20120719
  Transmission Date: 20120928
  Serious: Yes (Other)
  Sender: FDA-Public Use
  Company Number: AR-AMGEN-ARGSP2012046734

PATIENT
  Age: 49 Year
  Sex: Female

DRUGS (4)
  1. CORTICOSTEROIDS [Concomitant]
     Dosage: UNK
  2. OMEPRAZOLE [Concomitant]
     Dosage: UNK
  3. DICLOFENAC [Concomitant]
     Dosage: UNK
  4. ENBREL [Suspect]
     Indication: RHEUMATOID ARTHRITIS
     Dosage: 25 MG, WEEKLY
     Route: 058
     Dates: start: 20090303, end: 20090101

REACTIONS (2)
  - DEVICE RELATED INFECTION [None]
  - RHEUMATOID ARTHRITIS [None]
